FAERS Safety Report 10201405 (Version 2)
Quarter: 2014Q2

REPORT INFORMATION
  Report Type: Spontaneous
  Country: BE (occurrence: BE)
  Receive Date: 20140528
  Receipt Date: 20140528
  Transmission Date: 20141212
  Serious: Yes (Other)
  Sender: FDA-Public Use
  Company Number: BE-ROCHE-1369399

PATIENT
  Sex: Female

DRUGS (4)
  1. XOLAIR [Suspect]
     Indication: ASTHMA
     Route: 058
     Dates: start: 2013
  2. XOLAIR [Suspect]
     Route: 058
     Dates: start: 201402
  3. XOLAIR [Suspect]
     Route: 058
  4. XOLAIR [Suspect]
     Dosage: FOURTH INJECTION
     Route: 058
     Dates: end: 20140320

REACTIONS (7)
  - Type IV hypersensitivity reaction [Recovering/Resolving]
  - Fluid retention [Recovering/Resolving]
  - Arthralgia [Recovering/Resolving]
  - Pyrexia [Recovering/Resolving]
  - Therapeutic response changed [Recovering/Resolving]
  - Urticaria [Recovering/Resolving]
  - Feeling hot [Unknown]
